FAERS Safety Report 13706421 (Version 2)
Quarter: 2017Q3

REPORT INFORMATION
  Report Type: Report from Study
  Country: PL (occurrence: PL)
  Receive Date: 20170630
  Receipt Date: 20170717
  Transmission Date: 20171127
  Serious: Yes (Other)
  Sender: FDA-Public Use
  Company Number: PL-LEO PHARMA-303503

PATIENT

DRUGS (2)
  1. ELOCOMP [Suspect]
     Active Substance: MOMETASONE FUROATE
     Indication: DERMATITIS ATOPIC
  2. PROTOPIC [Suspect]
     Active Substance: TACROLIMUS
     Indication: DERMATITIS ATOPIC
     Dosage: TUBE SIZE 10 GRAMS - 1 TUBE APPLIED (10 GRAMS)

REACTIONS (3)
  - Hyperthyroidism [Unknown]
  - Cardiac disorder [Unknown]
  - Haemorrhage [Unknown]
